FAERS Safety Report 4684944-1 (Version None)
Quarter: 2005Q2

REPORT INFORMATION
  Report Type: 
  Country: None (occurrence: None)
  Receive Date: 20050603
  Receipt Date: 20050523
  Transmission Date: 20051028
  Serious: No
  Sender: FDA-Public Use
  Company Number: 11248

PATIENT
  Age: 46 Year

DRUGS (1)
  1. PACLITAXEL [Suspect]
     Dosage: 312 MG PER_CYCLE IV
     Route: 042
     Dates: start: 20050101, end: 20050101

REACTIONS (1)
  - RETINAL HAEMORRHAGE [None]
